FAERS Safety Report 19620362 (Version 2)
Quarter: 2021Q3

REPORT INFORMATION
  Report Type: Spontaneous
  Country: AT (occurrence: AT)
  Receive Date: 20210728
  Receipt Date: 20210805
  Transmission Date: 20211014
  Serious: Yes (Life-Threatening, Hospitalization, Other)
  Sender: FDA-Public Use
  Company Number: AT-ROCHE-2877004

PATIENT
  Age: 80 Year
  Sex: Male
  Weight: 100 kg

DRUGS (8)
  1. TRENANTONE [Concomitant]
     Active Substance: LEUPROLIDE ACETATE
     Dosage: ALLE 3 MONATE
  2. GAZYVARO [Suspect]
     Active Substance: OBINUTUZUMAB
     Indication: CHRONIC LYMPHOCYTIC LEUKAEMIA
     Route: 042
     Dates: start: 20210716, end: 20210716
  3. OLEOVIT D3 [Concomitant]
     Active Substance: CHOLECALCIFEROL
  4. PANTOLOC [Concomitant]
     Active Substance: PANTOPRAZOLE SODIUM
     Dosage: 1?0?0
  5. ENTYVIO [Concomitant]
     Active Substance: VEDOLIZUMAB
     Indication: COLITIS ULCERATIVE
     Dosage: 1 X / WOCHE
     Dates: start: 2017
  6. LISINOPRIL. [Concomitant]
     Active Substance: LISINOPRIL
     Dosage: 1?0?0.5
  7. CONCOR [Concomitant]
     Active Substance: BISOPROLOL FUMARATE
     Dosage: 1?0?0
  8. THROMBO ASS [Concomitant]
     Active Substance: ASPIRIN
     Dosage: 1?0?0

REACTIONS (4)
  - Sopor [Not Recovered/Not Resolved]
  - Cerebral haemorrhage [Not Recovered/Not Resolved]
  - Anaphylactoid reaction [Not Recovered/Not Resolved]
  - Chills [Not Recovered/Not Resolved]

NARRATIVE: CASE EVENT DATE: 20210716
